FAERS Safety Report 23442480 (Version 1)
Quarter: 2024Q1

REPORT INFORMATION
  Report Type: Report from Study
  Country: US (occurrence: US)
  Receive Date: 20240125
  Receipt Date: 20240125
  Transmission Date: 20240410
  Serious: Yes (Hospitalization)
  Sender: FDA-Public Use
  Company Number: US-002147023-NVSC2023US259227

PATIENT

DRUGS (1)
  1. PIQRAY [Suspect]
     Active Substance: ALPELISIB
     Indication: Product used for unknown indication
     Dosage: UNK
     Route: 065

REACTIONS (8)
  - Blood pressure abnormal [Unknown]
  - Blood electrolytes abnormal [Unknown]
  - Vomiting [Unknown]
  - Dehydration [Unknown]
  - Cold sweat [Unknown]
  - Thyroid disorder [Unknown]
  - Hyperglycaemia [Unknown]
  - Rash [Unknown]
